FAERS Safety Report 22109425 (Version 1)
Quarter: 2023Q1

REPORT INFORMATION
  Report Type: Report from Study
  Country: CZ (occurrence: CZ)
  Receive Date: 20230317
  Receipt Date: 20230317
  Transmission Date: 20230418
  Serious: Yes (Death)
  Sender: FDA-Public Use
  Company Number: CZ-ABBVIE-4344652

PATIENT
  Age: 76 Year
  Sex: Female

DRUGS (7)
  1. CARBIDOPA\LEVODOPA [Suspect]
     Active Substance: CARBIDOPA\LEVODOPA
     Indication: Parkinson^s disease
     Dosage: CONTINUOUS DOSE 3.9 ML/HOUR, MORNING DOSE 7 ML, EXTRA DOSE 0 ML,  IN TOTAL 69.4 ML/DAY
     Route: 050
     Dates: start: 20140625, end: 20230305
  2. CARBIDOPA\LEVODOPA [Suspect]
     Active Substance: CARBIDOPA\LEVODOPA
  3. B komplex [Concomitant]
     Indication: Prophylaxis
     Route: 048
     Dates: start: 20180413, end: 20230305
  4. FOLIC ACID [Concomitant]
     Active Substance: FOLIC ACID
     Indication: Prophylaxis
     Route: 048
     Dates: start: 20180413, end: 20230305
  5. MELPERONE HYDROCHLORIDE [Concomitant]
     Active Substance: MELPERONE HYDROCHLORIDE
     Indication: Product used for unknown indication
     Route: 048
     Dates: start: 20210528, end: 20230305
  6. QUETIAPINE FUMARATE [Concomitant]
     Active Substance: QUETIAPINE FUMARATE
     Indication: Antipsychotic therapy
     Route: 048
     Dates: start: 20210421, end: 20230305
  7. CITALOPRAM [Concomitant]
     Active Substance: CITALOPRAM HYDROBROMIDE
     Indication: Product used for unknown indication
     Route: 048
     Dates: start: 201407, end: 20230305

REACTIONS (1)
  - Death [Fatal]

NARRATIVE: CASE EVENT DATE: 20230305
